FAERS Safety Report 11162656 (Version 1)
Quarter: 2015Q2

REPORT INFORMATION
  Report Type: Spontaneous
  Country: ES (occurrence: None)
  Receive Date: 20150602
  Receipt Date: 20150602
  Transmission Date: 20150821
  Serious: Yes (Other)
  Sender: FDA-Public Use
  Company Number: FK201502513

PATIENT
  Age: 66 Year
  Sex: Female

DRUGS (4)
  1. CARBOPLATIN (MANUFACTURER UNKNOWN) (CARBOPLATIN) (CARBOPLATIN) [Suspect]
     Active Substance: CARBOPLATIN
     Indication: RENAL CELL CARCINOMA
     Dosage: 1 IN 3WK
     Route: 041
  2. PEMETREXED (PEMETREXED) (PEMETREXED) [Suspect]
     Active Substance: PEMETREXED
     Indication: LUNG ADENOCARCINOMA
     Dosage: 1 IN 3 WK
     Route: 041
  3. CARBOPLATIN (MANUFACTURER UNKNOWN) (CARBOPLATIN) (CARBOPLATIN) [Suspect]
     Active Substance: CARBOPLATIN
     Indication: LUNG ADENOCARCINOMA
     Dosage: 1 IN 3WK
     Route: 041
  4. PEMETREXED (PEMETREXED) (PEMETREXED) [Suspect]
     Active Substance: PEMETREXED
     Indication: RENAL CELL CARCINOMA
     Dosage: 1 IN 3 WK
     Route: 041

REACTIONS (3)
  - Lymphopenia [None]
  - Normochromic normocytic anaemia [None]
  - Subacute cutaneous lupus erythematosus [None]
